FAERS Safety Report 15906363 (Version 1)
Quarter: 2019Q1

REPORT INFORMATION
  Report Type: Spontaneous
  Country: US (occurrence: US)
  Receive Date: 20190203
  Receipt Date: 20190203
  Transmission Date: 20190417
  Serious: Yes (Other)
  Sender: FDA-Public Use
  Company Number: None

PATIENT
  Age: 43 Year
  Sex: Male
  Weight: 75.15 kg

DRUGS (5)
  1. ALCOHOL. [Concomitant]
     Active Substance: ALCOHOL
  2. COLCHICINE. [Concomitant]
     Active Substance: COLCHICINE
  3. ALLOPURINOL. [Concomitant]
     Active Substance: ALLOPURINOL
  4. ROSUVASTATIN CALCIUM 5 MG TAB [Suspect]
     Active Substance: ROSUVASTATIN CALCIUM
     Indication: BLOOD TRIGLYCERIDES
     Dosage: ?          QUANTITY:1 TABLET(S);?
     Route: 048
     Dates: start: 20180714, end: 20180731
  5. ROSUVASTATIN CALCIUM 5 MG TAB [Suspect]
     Active Substance: ROSUVASTATIN CALCIUM
     Indication: BLOOD CHOLESTEROL INCREASED
     Dosage: ?          QUANTITY:1 TABLET(S);?
     Route: 048
     Dates: start: 20180714, end: 20180731

REACTIONS (2)
  - Arthritis [None]
  - Gout [None]

NARRATIVE: CASE EVENT DATE: 20180716
